FAERS Safety Report 5338712-8 (Version None)
Quarter: 2007Q2

REPORT INFORMATION
  Report Type: 
  Country: None (occurrence: None)
  Receive Date: 20070530
  Receipt Date: 20070522
  Transmission Date: 20071010
  Serious: Yes (Hospitalization)
  Sender: FDA-Public Use
  Company Number: B0468937A

PATIENT
  Age: 68 Year
  Sex: Female

DRUGS (2)
  1. LAPATINIB [Suspect]
     Dosage: 1250MG PER DAY
     Route: 048
     Dates: start: 20061219
  2. CAPECITABINE [Suspect]
     Route: 048
     Dates: start: 20061221, end: 20070102

REACTIONS (1)
  - CATHETER RELATED INFECTION [None]
